FAERS Safety Report 7911785 (Version 3)
Quarter: 2012Q4

REPORT INFORMATION
  Report Type: 
  Country: US (occurrence: US)
  Receive Date: 20110422
  Receipt Date: 20121018
  Transmission Date: 20130627
  Serious: Yes (Hospitalization, Other)
  Sender: FDA-Public Use
  Company Number: US-WATSON-2011-05134

PATIENT
  Age: 69 Year
  Sex: Female
  Weight: 56.7 kg

DRUGS (13)
  1. PREDNISONE (WATSON LABORATORIES) [Suspect]
     Indication: BRONCHITIS
     Dosage: 1/4 tab in am, 1/4 tab in pm
     Route: 048
     Dates: start: 20110127, end: 20110127
  2. PREDNISONE [Suspect]
     Indication: PRODUCT USED FOR UNKNOWN INDICATION
     Dosage: 1 tablet daily for 4 days
     Route: 048
     Dates: start: 20110310, end: 20110313
  3. PREDNISONE [Suspect]
     Dosage: 2 tabs daily for 4 days
     Route: 048
     Dates: start: 20110306, end: 20110309
  4. PREDNISONE [Suspect]
     Dosage: 3 tabs daily for 4 days
     Route: 048
     Dates: start: 20110302, end: 20110305
  5. PREDNISONE [Suspect]
     Dosage: 4 tabs daily for 4 days
     Route: 048
     Dates: start: 20110226, end: 20110301
  6. PREDNISONE [Suspect]
     Dosage: 5 tabs daily for 4 days
     Route: 048
     Dates: start: 20110222, end: 20110225
  7. PREDNISONE [Suspect]
     Dosage: 6 tablets daily for 3 days
     Route: 048
     Dates: start: 20110219, end: 20110221
  8. PROVERA [Concomitant]
     Indication: HORMONE REPLACEMENT THERAPY
     Dosage: one tablet daily
     Route: 048
     Dates: start: 1991
  9. PREMARIN                           /00073001/ [Concomitant]
     Indication: HORMONE REPLACEMENT THERAPY
     Dosage: one tablet daily
     Route: 048
     Dates: start: 1991
  10. ATIVAN [Concomitant]
     Indication: PRODUCT USED FOR UNKNOWN INDICATION
     Dosage: 2 mg, q4h, prn
     Route: 048
     Dates: end: 20110215
  11. VALIUM                             /00017001/ [Concomitant]
     Indication: PRODUCT USED FOR UNKNOWN INDICATION
     Dosage: 0.5 mg, qhs
     Route: 048
     Dates: end: 20110215
  12. PREMARIN                           /00073001/ [Concomitant]
     Indication: PRODUCT USED FOR UNKNOWN INDICATION
     Dosage: 0.625 mg, daily
     Route: 048
  13. MEDROXYPROGESTERONE [Concomitant]
     Indication: PRODUCT USED FOR UNKNOWN INDICATION
     Dosage: 2.5 mg, daily
     Route: 048

REACTIONS (15)
  - Chronic obstructive pulmonary disease [Unknown]
  - Pneumonia [Unknown]
  - Myocardial infarction [Unknown]
  - Swelling [Not Recovered/Not Resolved]
  - Weight increased [Not Recovered/Not Resolved]
  - Feeling jittery [Not Recovered/Not Resolved]
  - Hypoaesthesia [Not Recovered/Not Resolved]
  - Dyspnoea exertional [Not Recovered/Not Resolved]
  - Palpitations [Not Recovered/Not Resolved]
  - Thermal burn [Not Recovered/Not Resolved]
  - Paraesthesia [Not Recovered/Not Resolved]
  - Drug hypersensitivity [None]
  - Nausea [Not Recovered/Not Resolved]
  - Vertigo [Not Recovered/Not Resolved]
  - Amnesia [Not Recovered/Not Resolved]
